FAERS Safety Report 9659630 (Version 2)
Quarter: 2014Q3

REPORT INFORMATION
  Report Type: Report from Study
  Country: CA (occurrence: CA)
  Receive Date: 20131031
  Receipt Date: 20140827
  Transmission Date: 20150326
  Serious: Yes (Other)
  Sender: FDA-Public Use
  Company Number: CA-JNJFOC-20131014962

PATIENT
  Age: 76 Year
  Sex: Female
  Weight: 95.2 kg

DRUGS (15)
  1. METHOTREXATE [Concomitant]
     Active Substance: METHOTREXATE
     Dosage: 10 TABLETS WEEKLY
     Route: 065
  2. CYMBALTA [Concomitant]
     Active Substance: DULOXETINE HYDROCHLORIDE
     Route: 065
  3. ATACAND [Concomitant]
     Active Substance: CANDESARTAN CILEXETIL
     Route: 065
  4. FOLIC ACID. [Concomitant]
     Active Substance: FOLIC ACID
     Route: 065
  5. BYSTOLIC [Concomitant]
     Active Substance: NEBIVOLOL HYDROCHLORIDE
     Route: 065
  6. REMICADE [Suspect]
     Active Substance: INFLIXIMAB
     Indication: PSORIATIC ARTHROPATHY
     Route: 042
     Dates: start: 20090313
  7. ACTONEL [Concomitant]
     Active Substance: RISEDRONATE SODIUM
     Route: 065
  8. ESTRACE [Concomitant]
     Active Substance: ESTRADIOL
     Route: 065
  9. SYNTHROID [Concomitant]
     Active Substance: LEVOTHYROXINE SODIUM
     Route: 065
  10. PARADEX [Concomitant]
     Route: 065
  11. MINOCYCLINE [Concomitant]
     Active Substance: MINOCYCLINE\MINOCYCLINE HYDROCHLORIDE
     Route: 065
  12. ACLASTA [Concomitant]
     Active Substance: ZOLEDRONIC ACID
     Route: 065
  13. LIORESAL [Concomitant]
     Active Substance: BACLOFEN
     Route: 065
  14. ATIVAN [Concomitant]
     Active Substance: LORAZEPAM
     Dosage: PRN
     Route: 065
  15. MERIDIA [Concomitant]
     Active Substance: SIBUTRAMINE HYDROCHLORIDE
     Route: 065

REACTIONS (3)
  - Wrist fracture [Not Recovered/Not Resolved]
  - Osteoarthritis [Not Recovered/Not Resolved]
  - Joint dislocation [Not Recovered/Not Resolved]

NARRATIVE: CASE EVENT DATE: 201310
